FAERS Safety Report 14067522 (Version 5)
Quarter: 2018Q2

REPORT INFORMATION
  Report Type: Spontaneous
  Country: US (occurrence: US)
  Receive Date: 20171009
  Receipt Date: 20180605
  Transmission Date: 20180711
  Serious: No
  Sender: FDA-Public Use
  Company Number: US-ACTELION-A-US2017-158859

PATIENT
  Age: 62 Year
  Sex: Female
  Weight: 54.42 kg

DRUGS (7)
  1. ELIQUIS [Concomitant]
     Active Substance: APIXABAN
  2. LETAIRIS [Suspect]
     Active Substance: AMBRISENTAN
     Indication: PRODUCT USED FOR UNKNOWN INDICATION
     Dosage: 10 MG, QD
     Route: 065
     Dates: start: 20170628
  3. REVATIO [Concomitant]
     Active Substance: SILDENAFIL CITRATE
  4. XARELTO [Concomitant]
     Active Substance: RIVAROXABAN
  5. TYVASO [Concomitant]
     Active Substance: TREPROSTINIL
  6. VENTAVIS [Suspect]
     Active Substance: ILOPROST
     Indication: PULMONARY HYPERTENSION
     Dosage: 5 MCG, 6-9X/DAY
     Route: 055
  7. SILDENAFIL CITRATE. [Concomitant]
     Active Substance: SILDENAFIL CITRATE

REACTIONS (15)
  - Rales [Unknown]
  - Oedema peripheral [Unknown]
  - Headache [Recovered/Resolved]
  - Cough [Not Recovered/Not Resolved]
  - Dry mouth [Recovering/Resolving]
  - Incorrect drug administration duration [Unknown]
  - Therapy non-responder [Unknown]
  - Dyspnoea [Unknown]
  - Wheezing [Unknown]
  - Diarrhoea [Unknown]
  - Vomiting [Unknown]
  - Device malfunction [Unknown]
  - Seasonal allergy [Unknown]
  - Fatigue [Unknown]
  - Chest discomfort [Unknown]
